FAERS Safety Report 18016030 (Version 1)
Quarter: 2020Q3

REPORT INFORMATION
  Report Type: Spontaneous
  Country: KR (occurrence: KR)
  Receive Date: 20200713
  Receipt Date: 20200713
  Transmission Date: 20201103
  Serious: Yes (Hospitalization, Other)
  Sender: FDA-Public Use
  Company Number: KR-ELI_LILLY_AND_COMPANY-KR202007004341

PATIENT
  Age: 19 Year
  Sex: Female

DRUGS (5)
  1. PREDNISOLONE. [Concomitant]
     Active Substance: PREDNISOLONE
     Dosage: 10 MG, DAILY
  2. MYCOPHENOLATE MOFETIL. [Concomitant]
     Active Substance: MYCOPHENOLATE MOFETIL
     Dosage: 1500 MG, DAILY
  3. ASPIRIN N [Concomitant]
     Active Substance: ASPIRIN
     Indication: THALAMIC INFARCTION
     Dosage: 100 MG, DAILY
  4. DULOXETINE HYDROCHLORIDE. [Suspect]
     Active Substance: DULOXETINE HYDROCHLORIDE
     Indication: NEUROPATHY PERIPHERAL
     Dosage: 60 MG, DAILY
     Route: 065
  5. LANSOPRAZOLE. [Concomitant]
     Active Substance: LANSOPRAZOLE
     Dosage: 30 MG, DAILY

REACTIONS (6)
  - Subarachnoid haemorrhage [Unknown]
  - Anaemia [Unknown]
  - Reversible cerebral vasoconstriction syndrome [Recovered/Resolved]
  - C-reactive protein increased [Unknown]
  - Hypocomplementaemia [Unknown]
  - Leukocytosis [Unknown]
